FAERS Safety Report 9827409 (Version 1)
Quarter: 2013Q4

REPORT INFORMATION
  Report Type: Spontaneous
  Country: US (occurrence: None)
  Receive Date: 20131115
  Receipt Date: 20131115
  Transmission Date: 20140711
  Serious: Yes (Other)
  Sender: FDA-Public Use
  Company Number: 2012P1066575

PATIENT
  Age: 48 Year
  Sex: Female

DRUGS (1)
  1. INFUMORPH [Suspect]

REACTIONS (6)
  - Hypersensitivity [None]
  - Dysuria [None]
  - Urinary retention [None]
  - Pain in extremity [None]
  - Muscle spasms [None]
  - Therapeutic response decreased [None]
